FAERS Safety Report 7982077-X (Version None)
Quarter: 2011Q4

REPORT INFORMATION
  Report Type: 
  Country: None (occurrence: None)
  Receive Date: 20111215
  Receipt Date: 20111210
  Transmission Date: 20120403
  Serious: Yes (Death, Hospitalization, Other)
  Sender: FDA-Public Use
  Company Number: IN-PFIZER INC-2011301663

PATIENT
  Age: 42 Year
  Sex: Male

DRUGS (1)
  1. SUTENT [Suspect]
     Indication: METASTATIC RENAL CELL CARCINOMA
     Dosage: 50 MG, 1X/DAY
     Route: 048
     Dates: start: 20110818, end: 20111105

REACTIONS (13)
  - OEDEMA PERIPHERAL [None]
  - VOMITING [None]
  - SKIN DISCOLOURATION [None]
  - DISEASE PROGRESSION [None]
  - BLOOD POTASSIUM INCREASED [None]
  - ASTHENIA [None]
  - METASTATIC RENAL CELL CARCINOMA [None]
  - TESTICULAR SWELLING [None]
  - DIPLEGIA [None]
  - BLOOD CALCIUM DECREASED [None]
  - APHAGIA [None]
  - STOMATITIS [None]
  - BLOOD URINE PRESENT [None]
